FAERS Safety Report 9812788 (Version 1)
Quarter: 2014Q1

REPORT INFORMATION
  Report Type: Spontaneous
  Country: US (occurrence: None)
  Receive Date: 20140109
  Receipt Date: 20140109
  Transmission Date: 20141002
  Serious: Yes (Hospitalization, Disabling, Other)
  Sender: FDA-Public Use
  Company Number: None

PATIENT
  Age: 42 Year
  Sex: Female
  Weight: 74.84 kg

DRUGS (1)
  1. LAMOTRIGINE [Suspect]
     Indication: BIPOLAR DISORDER
     Route: 048
     Dates: start: 20131105, end: 20131107

REACTIONS (10)
  - Skin burning sensation [None]
  - Rash [None]
  - Rash [None]
  - Stomatitis [None]
  - Myalgia [None]
  - Pain [None]
  - Oropharyngeal pain [None]
  - Dysphonia [None]
  - Neoplasm malignant [None]
  - Malignant palate neoplasm [None]
